FAERS Safety Report 4686311-3 (Version None)
Quarter: 2005Q2

REPORT INFORMATION
  Report Type: 
  Country: None (occurrence: None)
  Receive Date: 20050606
  Receipt Date: 20050523
  Transmission Date: 20051028
  Serious: Yes (Hospitalization)
  Sender: FDA-Public Use
  Company Number: 214819

PATIENT
  Age: 70 Year
  Sex: Male

DRUGS (5)
  1. RITUXAN [Suspect]
     Indication: NON-HODGKIN'S LYMPHOMA
     Dates: start: 20030311
  2. CYCLOPHOSPHAMIDE [Suspect]
     Indication: NON-HODGKIN'S LYMPHOMA
     Dates: start: 20030312
  3. DOXORUBICN               (DOXORUBICIN HYDROCHLORIDE) [Suspect]
     Indication: NON-HODGKIN'S LYMPHOMA
     Dates: start: 20030312
  4. VINCRISTINE [Suspect]
     Indication: NON-HODGKIN'S LYMPHOMA
     Dates: start: 20030312
  5. PREDNISONE (PREDNISONE) [Suspect]
     Indication: NON-HODGKIN'S LYMPHOMA
     Dates: start: 20030312

REACTIONS (13)
  - ACUTE RESPIRATORY DISTRESS SYNDROME [None]
  - AORTIC VALVE INCOMPETENCE [None]
  - AORTIC VALVE SCLEROSIS [None]
  - ATELECTASIS [None]
  - ATRIAL HYPERTROPHY [None]
  - CARDIOPULMONARY FAILURE [None]
  - DIABETES MELLITUS [None]
  - GASTROINTESTINAL HAEMORRHAGE [None]
  - HYPOVOLAEMIA [None]
  - PANCYTOPENIA [None]
  - PERICARDIAL EFFUSION [None]
  - PNEUMONIA [None]
  - VENTRICULAR HYPERTROPHY [None]
